FAERS Safety Report 15504868 (Version 1)
Quarter: 2018Q4

REPORT INFORMATION
  Report Type: Spontaneous
  Country: US (occurrence: US)
  Receive Date: 20181010
  Receipt Date: 20181010
  Transmission Date: 20190205
  Serious: Yes (Hospitalization)
  Sender: FDA-Public Use
  Company Number: None

PATIENT

DRUGS (1)
  1. HYDROCHLOROTHIAZIDE 19.5MG ONCE A DAY [Suspect]
     Active Substance: HYDROCHLOROTHIAZIDE
     Indication: BLOOD PRESSURE MANAGEMENT
     Route: 048
     Dates: start: 20180708

REACTIONS (4)
  - Headache [None]
  - Wrong product administered [None]
  - Product dispensing error [None]
  - Recalled product administered [None]

NARRATIVE: CASE EVENT DATE: 20180409
